FAERS Safety Report 5245986-0 (Version None)
Quarter: 2007Q1

REPORT INFORMATION
  Report Type: 
  Country: None (occurrence: None)
  Receive Date: 20070220
  Receipt Date: 20070207
  Transmission Date: 20070707
  Serious: Yes (Hospitalization)
  Sender: FDA-Public Use
  Company Number: 152644ISR

PATIENT
  Age: 65 Year
  Sex: Male

DRUGS (7)
  1. CISPLATIN [Suspect]
     Indication: GASTRIC CANCER
     Dosage: CYCLE 1 (159 MG, 1 IN 28 D) (159 MG) INTRAVENOUS DRIP
     Route: 041
     Dates: start: 20061117, end: 20061117
  2. FLUOROURACIL [Suspect]
     Indication: GASTRIC CANCER
     Dosage: CYCLE 1, 1-5 DAYS EVERY 28 DAYS, (1590 MG, 1 IN 1 D) (1590 MG, 1 IN 1 D) INTRAVENOUS DRIP
     Route: 041
     Dates: start: 20061117, end: 20061121
  3. AMPHOTERICIN B [Concomitant]
  4. DEXPANTHENOL [Concomitant]
  5. FLUCONAZOLE [Concomitant]
  6. NEOTRACIN [Concomitant]
  7. AZIDAMFENICOL [Concomitant]

REACTIONS (2)
  - CONDITION AGGRAVATED [None]
  - CONJUNCTIVITIS [None]
